FAERS Safety Report 9566543 (Version 1)
Quarter: 2013Q3

REPORT INFORMATION
  Report Type: Report from Study
  Country: TW (occurrence: TW)
  Receive Date: 20130930
  Receipt Date: 20130930
  Transmission Date: 20140515
  Serious: No
  Sender: FDA-Public Use
  Company Number: PHHY2012TW120559

PATIENT
  Age: 23 Year
  Sex: Male

DRUGS (16)
  1. AMN107 [Suspect]
     Dosage: UNK
  2. LOPERAMIDE [Concomitant]
     Indication: IRRITABLE BOWEL SYNDROME
     Dates: start: 20110602, end: 20110615
  3. CATAFLAM [Concomitant]
     Indication: PAIN
     Dates: start: 20120209, end: 20120213
  4. CATAFLAM [Concomitant]
     Dates: start: 20120331, end: 20120407
  5. SECORIN [Concomitant]
     Indication: ANXIETY
     Dates: start: 20120209, end: 20120213
  6. DEXALTIN [Concomitant]
     Indication: MOUTH ULCERATION
     Dates: start: 20120502, end: 20120515
  7. DEXALTIN [Concomitant]
     Dates: start: 20120530, end: 20120613
  8. THIAMPHENICOL [Concomitant]
     Dates: start: 20120331, end: 20120407
  9. BENTYL [Concomitant]
     Indication: ABDOMINAL PAIN
     Dates: start: 20120919, end: 20120921
  10. MUCAINE [Concomitant]
     Indication: ABDOMINAL PAIN
     Dates: start: 20120919, end: 20120921
  11. URSODESOXYCHOLIC ACID [Concomitant]
     Indication: HYPERBILIRUBINAEMIA
     Dates: start: 20120802, end: 20120905
  12. MELOXICAM [Concomitant]
     Indication: UPPER RESPIRATORY TRACT INFECTION
     Dates: start: 20121016, end: 20121019
  13. MEDICON                            /02167701/ [Concomitant]
     Indication: UPPER RESPIRATORY TRACT INFECTION
     Dosage: UNK
     Dates: start: 20121016, end: 20121019
  14. MEFENAMIC [Concomitant]
     Indication: UPPER RESPIRATORY TRACT INFECTION
     Dates: start: 20121016, end: 20121019
  15. FAMOTIDINE [Concomitant]
     Indication: UPPER RESPIRATORY TRACT INFECTION
     Dates: start: 20121016, end: 20121019
  16. DENOSIN [Concomitant]
     Indication: UPPER RESPIRATORY TRACT INFECTION
     Dates: start: 20121016, end: 20121019

REACTIONS (1)
  - Vertigo [Unknown]
